FAERS Safety Report 10501241 (Version 1)
Quarter: 2014Q4

REPORT INFORMATION
  Report Type: Spontaneous
  Country: US (occurrence: None)
  Receive Date: 20141006
  Receipt Date: 20141006
  Transmission Date: 20150528
  Serious: No
  Sender: FDA-Public Use
  Company Number: None

PATIENT
  Age: 34 Year
  Sex: Male
  Weight: 95 kg

DRUGS (1)
  1. CEFAZOLIN\DEXTROSE [Suspect]
     Active Substance: CEFAZOLIN\DEXTROSE
     Indication: SURGERY
     Route: 042
     Dates: start: 20141003, end: 20141003

REACTIONS (2)
  - Urticaria [None]
  - Infusion related reaction [None]

NARRATIVE: CASE EVENT DATE: 20141003
